FAERS Safety Report 20965991 (Version 1)
Quarter: 2022Q2

REPORT INFORMATION
  Report Type: Spontaneous
  Country: AU (occurrence: AU)
  Receive Date: 20220616
  Receipt Date: 20220616
  Transmission Date: 20220720
  Serious: Yes (Hospitalization, Other)
  Sender: FDA-Public Use
  Company Number: AU-LUPIN PHARMACEUTICALS INC.-2022-08704

PATIENT
  Age: 43 Year
  Sex: Female
  Weight: 55 kg

DRUGS (6)
  1. CLONIDINE [Interacting]
     Active Substance: CLONIDINE
     Indication: Product used for unknown indication
     Dosage: UNK
     Route: 065
  2. FENTANYL [Interacting]
     Active Substance: FENTANYL
     Indication: Toxicity to various agents
     Dosage: UNK
     Route: 065
  3. PROPOFOL [Interacting]
     Active Substance: PROPOFOL
     Indication: Toxicity to various agents
     Dosage: UNK
     Route: 065
  4. ACETAMINOPHEN\CHLORPHENIRAMINE\DEXTROMETHORPHAN [Interacting]
     Active Substance: ACETAMINOPHEN\CHLORPHENIRAMINE\DEXTROMETHORPHAN
     Indication: Product used for unknown indication
     Dosage: UNK
     Route: 065
  5. THIAMINE [Concomitant]
     Active Substance: THIAMINE
     Indication: Product used for unknown indication
     Dosage: UNK
     Route: 065
  6. VITAMINS [Concomitant]
     Active Substance: VITAMINS
     Indication: Product used for unknown indication
     Dosage: UNK
     Route: 065

REACTIONS (6)
  - Altered state of consciousness [Unknown]
  - Bradycardia [Unknown]
  - Acute hepatic failure [Recovered/Resolved]
  - Drug interaction [Unknown]
  - Overdose [Unknown]
  - Acute kidney injury [Recovered/Resolved]
